FAERS Safety Report 16342694 (Version 1)
Quarter: 2019Q2

REPORT INFORMATION
  Report Type: Spontaneous
  Country: JP (occurrence: JP)
  Receive Date: 20190522
  Receipt Date: 20190522
  Transmission Date: 20190711
  Serious: Yes (Hospitalization)
  Sender: FDA-Public Use
  Company Number: JP-EISAI MEDICAL RESEARCH-EC-2019-054784

PATIENT
  Age: 64 Year
  Sex: Male
  Weight: 48 kg

DRUGS (8)
  1. LENVIMA [Suspect]
     Active Substance: LENVATINIB
     Route: 048
     Dates: start: 20180718, end: 20180801
  2. LENVIMA [Suspect]
     Active Substance: LENVATINIB
     Route: 048
     Dates: start: 20180815, end: 20181218
  3. LENVIMA [Suspect]
     Active Substance: LENVATINIB
     Indication: HEPATOCELLULAR CARCINOMA
     Route: 048
     Dates: start: 20180517, end: 20180530
  4. LENVIMA [Suspect]
     Active Substance: LENVATINIB
     Dosage: 4MG X 1D 2 WEEKS ON/1 WEEKS OFF REGIMEN
     Route: 048
     Dates: start: 20181219, end: 20190205
  5. LENVIMA [Suspect]
     Active Substance: LENVATINIB
     Route: 048
     Dates: start: 20190206, end: 20190208
  6. LENVIMA [Suspect]
     Active Substance: LENVATINIB
     Dosage: DOSE AND FREQUENCY UNKNOWN
     Route: 048
     Dates: start: 20180626, end: 20180626
  7. SORAFENIB [Concomitant]
     Active Substance: SORAFENIB
     Indication: HEPATOCELLULAR CARCINOMA
     Dosage: DOSE AND FREQUENCY UNKNOWN
     Route: 065
     Dates: start: 20180704, end: 20180717
  8. LENVIMA [Suspect]
     Active Substance: LENVATINIB
     Route: 048
     Dates: start: 20190209

REACTIONS (14)
  - Malaise [Unknown]
  - Depressive symptom [Unknown]
  - Abdominal pain [Unknown]
  - Blood thyroid stimulating hormone increased [Unknown]
  - Nausea [Unknown]
  - Pyrexia [Unknown]
  - Blood pressure increased [Unknown]
  - Blood albumin decreased [Unknown]
  - Diarrhoea [Unknown]
  - Somnolence [Unknown]
  - Protein urine present [Unknown]
  - Blood bilirubin increased [Unknown]
  - Decreased appetite [Recovered/Resolved]
  - Hyponatraemia [Unknown]

NARRATIVE: CASE EVENT DATE: 20180521
